FAERS Safety Report 8791033 (Version 1)
Quarter: 2012Q4

REPORT INFORMATION
  Report Type: 
  Country: US (occurrence: None)
  Receive Date: 20120906
  Receipt Date: 20120906
  Transmission Date: 20130627
  Serious: Yes (Other)
  Sender: FDA-Public Use
  Company Number: HCDA20120072

PATIENT
  Age: 33 Year
  Sex: Female

DRUGS (1)
  1. ACETAMINOPHEN\HYDROCODONE BITARTRATE [Suspect]
     Indication: DRUG ABUSE
     Route: 045

REACTIONS (4)
  - Nasopharyngitis [None]
  - Fungal infection [None]
  - Drug abuse [None]
  - Wrong technique in drug usage process [None]
